FAERS Safety Report 24042891 (Version 11)
Quarter: 2025Q3

REPORT INFORMATION
  Report Type: Spontaneous
  Country: US (occurrence: US)
  Receive Date: 20240702
  Receipt Date: 20250903
  Transmission Date: 20251020
  Serious: Yes (Other)
  Sender: PFIZER
  Company Number: US-PFIZER INC-PV202400085538

PATIENT
  Age: 68 Year
  Sex: Female

DRUGS (3)
  1. INLYTA [Suspect]
     Active Substance: AXITINIB
     Indication: Renal cancer
     Dosage: 2 MG, 2X/DAY (THREE WEEKS ON)
     Dates: start: 202406
  2. INLYTA [Suspect]
     Active Substance: AXITINIB
     Dosage: 3 MG, 2X/DAY (FOR 21 DAYS)
     Route: 048
     Dates: start: 20250101
  3. INLYTA [Suspect]
     Active Substance: AXITINIB
     Dosage: TAKE 1 TABLET (5 MG) BY MOUTH 2 TIMES DAILY
     Route: 048

REACTIONS (3)
  - Spinal fracture [Unknown]
  - Kidney infection [Unknown]
  - Urinary tract infection [Unknown]
